FAERS Safety Report 25412270 (Version 2)
Quarter: 2025Q2

REPORT INFORMATION
  Report Type: Report from Study
  Country: US (occurrence: US)
  Receive Date: 20250609
  Receipt Date: 20250620
  Transmission Date: 20250717
  Serious: Yes (Hospitalization)
  Sender: ABBVIE
  Company Number: US-ABBVIE-6313057

PATIENT
  Age: 38 Year
  Sex: Male
  Weight: 88 kg

DRUGS (1)
  1. SKYRIZI [Suspect]
     Active Substance: RISANKIZUMAB-RZAA
     Indication: Crohn^s disease
     Dosage: COMPLETED THREE DOSES
     Route: 058
     Dates: start: 202410, end: 20250501

REACTIONS (7)
  - Small intestinal obstruction [Not Recovered/Not Resolved]
  - Faecal calprotectin increased [Recovering/Resolving]
  - Vomiting [Unknown]
  - Drug ineffective [Not Recovered/Not Resolved]
  - Terminal ileitis [Not Recovered/Not Resolved]
  - Abdominal pain [Unknown]
  - Ileal stenosis [Not Recovered/Not Resolved]

NARRATIVE: CASE EVENT DATE: 20250101
